FAERS Safety Report 9106477 (Version 1)
Quarter: 2013Q1

REPORT INFORMATION
  Report Type: Spontaneous
  Country: US (occurrence: US)
  Receive Date: 20130221
  Receipt Date: 20130221
  Transmission Date: 20140127
  Serious: Yes (Other)
  Sender: FDA-Public Use
  Company Number: US-PFIZER INC-2013064052

PATIENT
  Sex: 0

DRUGS (1)
  1. CHANTIX [Suspect]
     Indication: SMOKING CESSATION THERAPY
     Dosage: UNK

REACTIONS (20)
  - Road traffic accident [Unknown]
  - Abasia [Unknown]
  - Pelvic fracture [Unknown]
  - Depression [Unknown]
  - Suicidal ideation [Unknown]
  - Violence-related symptom [Unknown]
  - Urethral perforation [Unknown]
  - Urinary incontinence [Unknown]
  - Stress [Unknown]
  - Agitation [Unknown]
  - Hostility [Unknown]
  - Abnormal behaviour [Unknown]
  - Anxiety [Unknown]
  - Panic reaction [Unknown]
  - Aggression [Unknown]
  - Anger [Unknown]
  - Mania [Unknown]
  - Feeling abnormal [Recovering/Resolving]
  - Thinking abnormal [Unknown]
  - Mood altered [Unknown]
